FAERS Safety Report 9007466 (Version 1)
Quarter: 2013Q1

REPORT INFORMATION
  Report Type: Spontaneous
  Country: US (occurrence: US)
  Receive Date: 20130110
  Receipt Date: 20130110
  Transmission Date: 20140127
  Serious: Yes (Other)
  Sender: FDA-Public Use
  Company Number: US-009507513-0909USA03338

PATIENT
  Age: 4 Year
  Sex: Male
  Weight: 19.51 kg

DRUGS (1)
  1. SINGULAIR [Suspect]
     Indication: ASTHMA
     Dosage: 4 MG, QD
     Route: 048
     Dates: start: 20050310, end: 20081101

REACTIONS (5)
  - Insomnia [Unknown]
  - Abnormal dreams [Unknown]
  - Aggression [Unknown]
  - Agitation [Unknown]
  - Epistaxis [Unknown]
